FAERS Safety Report 12732548 (Version 1)
Quarter: 2016Q3

REPORT INFORMATION
  Report Type: Spontaneous
  Country: JP (occurrence: JP)
  Receive Date: 20160912
  Receipt Date: 20160912
  Transmission Date: 20161109
  Serious: Yes (Hospitalization)
  Sender: FDA-Public Use
  Company Number: JP-CMP PHARMA-2016CMP00019

PATIENT
  Age: 57 Year
  Sex: Male

DRUGS (12)
  1. ETHAMBUTOL [Concomitant]
     Active Substance: ETHAMBUTOL HYDROCHLORIDE
     Dosage: 0.75 G, 1X/DAY
     Route: 065
  2. ISONIAZID. [Suspect]
     Active Substance: ISONIAZID
     Dosage: 300 MG, 1X/DAY
     Route: 065
  3. RIFAMPICIN [Concomitant]
     Active Substance: RIFAMPIN
     Indication: TUBERCULOSIS
     Dosage: 0.45 G, 1X/DAY
     Route: 065
  4. ETHAMBUTOL [Concomitant]
     Active Substance: ETHAMBUTOL HYDROCHLORIDE
     Indication: TUBERCULOSIS
     Dosage: 0.75 G, 1X/DAY
     Route: 065
  5. ISONIAZID. [Suspect]
     Active Substance: ISONIAZID
     Indication: TUBERCULOSIS
     Dosage: 0.3 G, 1X/DAY
     Route: 065
  6. ISONIAZID. [Suspect]
     Active Substance: ISONIAZID
     Dosage: 50 MG, 1X/DAY
     Route: 065
  7. ISONIAZID. [Suspect]
     Active Substance: ISONIAZID
     Dosage: 200 MG, 1X/DAY
     Route: 065
  8. ISONIAZID. [Suspect]
     Active Substance: ISONIAZID
     Dosage: 25 MG, 1X/DAY
     Route: 065
  9. ISONIAZID. [Suspect]
     Active Substance: ISONIAZID
     Dosage: 100 MG, 1X/DAY
     Route: 065
  10. RIFAMPICIN [Concomitant]
     Active Substance: RIFAMPIN
     Dosage: 0.45 G, 1X/DAY
     Route: 065
  11. PYRAZINAMIDE. [Concomitant]
     Active Substance: PYRAZINAMIDE
     Indication: TUBERCULOSIS
     Dosage: 1.2 G, 1X/DAY
     Route: 065
  12. PYRAZINAMIDE. [Concomitant]
     Active Substance: PYRAZINAMIDE
     Dosage: 1.2 G, 1X/DAY
     Route: 065

REACTIONS (5)
  - Pneumonia [Recovered/Resolved]
  - Hepatic function abnormal [None]
  - Alveolitis allergic [None]
  - Blood lactate dehydrogenase increased [None]
  - Lymphocyte stimulation test positive [None]
